FAERS Safety Report 12327514 (Version 2)
Quarter: 2016Q2

REPORT INFORMATION
  Report Type: Spontaneous
  Country: US (occurrence: US)
  Receive Date: 20160503
  Receipt Date: 20160610
  Transmission Date: 20160815
  Serious: No
  Sender: FDA-Public Use
  Company Number: US-GLAXOSMITHKLINE-US2016055145

PATIENT
  Sex: Female
  Weight: 88.44 kg

DRUGS (4)
  1. BENLYSTA [Suspect]
     Active Substance: BELIMUMAB
     Indication: SYSTEMIC LUPUS ERYTHEMATOSUS
     Dosage: 120 MG, UNK
     Route: 042
     Dates: end: 20150728
  2. BENLYSTA [Suspect]
     Active Substance: BELIMUMAB
     Dosage: 140 MG, UNK
     Route: 042
  3. BENLYSTA [Suspect]
     Active Substance: BELIMUMAB
     Dosage: 886 MG, UNK
     Route: 042
     Dates: start: 20131111, end: 20150728
  4. BENLYSTA [Suspect]
     Active Substance: BELIMUMAB
     Dosage: 400 MG, UNK
     Route: 042
     Dates: start: 20160419

REACTIONS (1)
  - Drug dose omission [Unknown]
